FAERS Safety Report 8253936-8 (Version None)
Quarter: 2012Q2

REPORT INFORMATION
  Report Type: 
  Country: None (occurrence: None)
  Receive Date: 20120402
  Receipt Date: 20120316
  Transmission Date: 20120825
  Serious: No
  Sender: FDA-Public Use
  Company Number: US-AMGEN-USASP2012017288

PATIENT
  Age: 55 Year
  Sex: Female

DRUGS (1)
  1. ENBREL [Suspect]
     Indication: RHEUMATOID ARTHRITIS
     Dosage: 50 MG, QWK
     Dates: start: 20120113

REACTIONS (11)
  - RESPIRATORY TRACT CONGESTION [None]
  - SKIN ODOUR ABNORMAL [None]
  - INSOMNIA [None]
  - INJECTION SITE HAEMORRHAGE [None]
  - RESTLESSNESS [None]
  - EPISTAXIS [None]
  - NIGHT SWEATS [None]
  - RHINORRHOEA [None]
  - SINUS CONGESTION [None]
  - NASOPHARYNGITIS [None]
  - PRODUCTIVE COUGH [None]
